FAERS Safety Report 4657466-1 (Version None)
Quarter: 2005Q2

REPORT INFORMATION
  Report Type: 
  Country: None (occurrence: None)
  Receive Date: 20050509
  Receipt Date: 20050509
  Transmission Date: 20051028
  Serious: Yes (Congenital Anomaly)
  Sender: FDA-Public Use
  Company Number: None

PATIENT
  Age: 20 Year
  Sex: Female
  Weight: 54.4316 kg

DRUGS (1)
  1. HYDROCODONE 500 MG [Suspect]
     Indication: PAIN
     Dosage: 1 TABLET 8HRS
     Dates: start: 20050505, end: 20050505

REACTIONS (5)
  - CHEST PAIN [None]
  - DIZZINESS [None]
  - PARANOIA [None]
  - SOMNOLENCE [None]
  - TREMOR [None]
